FAERS Safety Report 8512874-3 (Version None)
Quarter: 2012Q3

REPORT INFORMATION
  Report Type: 
  Country: None (occurrence: None)
  Receive Date: 20120705
  Receipt Date: 20120628
  Transmission Date: 20120928
  Serious: Yes (Other)
  Sender: FDA-Public Use
  Company Number: 2012SP018320

PATIENT

DRUGS (12)
  1. LOXONIN [Concomitant]
  2. PEG-INTRON [Suspect]
     Indication: HEPATITIS C
     Dosage: 1.3 MCG/KG, QW, SC
     Route: 058
     Dates: start: 20111221, end: 20120307
  3. ZOLOFT [Concomitant]
  4. REBETOL [Suspect]
     Indication: HEPATITIS C
     Dosage: 400 MG, QD, PO
     Route: 048
     Dates: start: 20111221, end: 20120314
  5. TELAVIC (ANTIVIRALS NOS) [Suspect]
     Indication: HEPATITIS C
     Dosage: 1500 MG, QD, PO
     Route: 048
     Dates: start: 20111221, end: 20120313
  6. MAGLAX [Concomitant]
  7. MEILAX [Concomitant]
  8. PRIMPERAN TAB [Concomitant]
  9. BETAMETHASONE SODIUM PHOSPHATE [Concomitant]
  10. NITRAZEPAM [Concomitant]
  11. VOLTAREN [Concomitant]
  12. SELBREX [Concomitant]

REACTIONS (6)
  - ERYTHEMA MULTIFORME [None]
  - TREMOR [None]
  - HAEMORRHOIDS [None]
  - BLOOD URIC ACID INCREASED [None]
  - DISSEMINATED INTRAVASCULAR COAGULATION [None]
  - COLLAGEN DISORDER [None]
